FAERS Safety Report 7968844-7 (Version None)
Quarter: 2011Q4

REPORT INFORMATION
  Report Type: 
  Country: None (occurrence: None)
  Receive Date: 20111209
  Receipt Date: 20111202
  Transmission Date: 20120403
  Serious: Yes (Other)
  Sender: FDA-Public Use
  Company Number: PHHY2011TR105668

PATIENT
  Age: 42 Year
  Sex: Male

DRUGS (10)
  1. MYCOPHENOLATE MOFETIL [Suspect]
     Indication: IMMUNOSUPPRESSANT DRUG THERAPY
     Dosage: 1500 MG, DAILY
  2. ACARBOSE [Concomitant]
     Dosage: 150 MG, PER DAY
  3. VERAPAMIL [Concomitant]
     Dosage: 240 MG, DAILY
  4. TACROLIMUS [Concomitant]
     Dosage: 2 G, DAILY
  5. HYDROCHLOROTHIAZIDE [Concomitant]
     Dosage: 12.5 MG, PER DAY
  6. PREDNISOLONE [Suspect]
     Indication: IMMUNOSUPPRESSANT DRUG THERAPY
     Dosage: 5 MG, EVERY 2 DAYS
  7. RANITIDINE [Concomitant]
     Dosage: 300 MG, DAILY
  8. CANDESARTAN CILEXETIL [Concomitant]
     Dosage: 16 MG, PER DAY
  9. ALLOPURINOL [Concomitant]
     Dosage: 300 MG, PER DAY
  10. SIROLIMUS [Suspect]
     Indication: IMMUNOSUPPRESSANT DRUG THERAPY
     Dosage: 2 MG, PER DAY

REACTIONS (7)
  - SKIN LESION [None]
  - ERYTHEMA [None]
  - PAIN [None]
  - SKIN ULCER [None]
  - SKIN NECROSIS [None]
  - PYODERMA GANGRENOSUM [None]
  - RASH PUSTULAR [None]
